FAERS Safety Report 9999059 (Version 1)
Quarter: 2014Q1

REPORT INFORMATION
  Report Type: Spontaneous
  Country: US (occurrence: None)
  Receive Date: 20140311
  Receipt Date: 20140311
  Transmission Date: 20141002
  Serious: Yes (Other)
  Sender: FDA-Public Use
  Company Number: None

PATIENT
  Age: 44 Year
  Sex: Male
  Weight: 90.72 kg

DRUGS (1)
  1. PERCOCET [Suspect]

REACTIONS (3)
  - Poor quality drug administered [None]
  - Product quality issue [None]
  - Drug ineffective [None]
